FAERS Safety Report 6573927-2 (Version None)
Quarter: 2010Q1

REPORT INFORMATION
  Report Type: 
  Country: None (occurrence: None)
  Receive Date: 20100204
  Receipt Date: 20100204
  Transmission Date: 20100710
  Serious: No
  Sender: FDA-Public Use
  Company Number: None

PATIENT
  Sex: Female
  Weight: 47.17 kg

DRUGS (5)
  1. RITUXIMAB (MOAB C2B8 ANTI CD20, CHIMERIC) [Suspect]
     Dosage: 645 MG
  2. VINCRISTINE SULFATE [Suspect]
     Dosage: 2 MG
  3. CYCLOPHOSPHAMIDE [Suspect]
     Dosage: 1290 MG
  4. DOXORUBICIN HCL [Suspect]
     Dosage: 86 MG
  5. PREDNISONE [Suspect]
     Dosage: 350 MG

REACTIONS (1)
  - LYMPHOPENIA [None]
